FAERS Safety Report 5207729-6 (Version None)
Quarter: 2006Q4

REPORT INFORMATION
  Report Type: 
  Country: None (occurrence: None)
  Receive Date: 20061030
  Receipt Date: 20060915
  Transmission Date: 20070319
  Serious: No
  Sender: FDA-Public Use
  Company Number: 2006CT000729

PATIENT
  Age: 67 Year
  Sex: Male
  Weight: 87.0906 kg

DRUGS (20)
  1. VENTAVIS [Suspect]
     Indication: PULMONARY HYPERTENSION
     Dosage: 2.5 YG; 6XD; INH
     Route: 055
     Dates: start: 20060814, end: 20060909
  2. SILDENAFIL CITRATE [Concomitant]
  3. FUROSEMIDE [Concomitant]
  4. METHOTREXATE [Concomitant]
  5. CELLCEPT [Concomitant]
  6. WARFARIN SODIUM [Concomitant]
  7. FOLIC ACID [Concomitant]
  8. RAPAMUNE [Concomitant]
  9. PREDNISONE [Concomitant]
  10. AZITHROMYCIN [Concomitant]
  11. ATORVASTATIN CALCIUM [Concomitant]
  12. ATENOLOL [Concomitant]
  13. PROGRAF [Concomitant]
  14. NYSTATIN [Concomitant]
  15. ZETIA [Concomitant]
  16. SEPTRA DS [Concomitant]
  17. CENTRUM [Concomitant]
  18. CALTRATE [Concomitant]
  19. APAP TAB [Concomitant]
  20. FLUOXETINE [Concomitant]

REACTIONS (5)
  - ASTHENIA [None]
  - FACIAL PAIN [None]
  - FATIGUE [None]
  - NAUSEA [None]
  - VOMITING [None]
